FAERS Safety Report 6619247-9 (Version None)
Quarter: 2010Q1

REPORT INFORMATION
  Report Type: 
  Country: None (occurrence: None)
  Receive Date: 20100218
  Receipt Date: 20100209
  Transmission Date: 20100710
  Serious: Yes (Death, Hospitalization, Other)
  Sender: FDA-Public Use
  Company Number: THYM-1001118

PATIENT
  Age: 27 Year
  Sex: Male

DRUGS (6)
  1. THYMOGLOBULIN [Suspect]
     Indication: APLASTIC ANAEMIA
     Dosage: 250 MG, QD, INTRAVENOUS
     Route: 042
     Dates: start: 20090218, end: 20090223
  2. CYCLOSPORINE [Suspect]
     Indication: APLASTIC ANAEMIA
     Dosage: 50 MG, QD
     Dates: start: 20090218, end: 20090914
  3. ITRACONAZOLE [Concomitant]
  4. OMEPRAZOLE [Concomitant]
  5. ACYCLOVIR [Concomitant]
  6. NEOMYCIN [Concomitant]

REACTIONS (9)
  - CARDIAC ARREST [None]
  - DEVICE RELATED INFECTION [None]
  - DIARRHOEA [None]
  - ENTEROCOCCAL SEPSIS [None]
  - FEBRILE NEUTROPENIA [None]
  - GENERALISED ERYTHEMA [None]
  - PULMONARY MYCOSIS [None]
  - SEPTIC SHOCK [None]
  - STEM CELL TRANSPLANT [None]
